FAERS Safety Report 9266322 (Version 3)
Quarter: 2014Q2

REPORT INFORMATION
  Report Type: Spontaneous
  Country: JP (occurrence: JP)
  Receive Date: 20130502
  Receipt Date: 20140619
  Transmission Date: 20141212
  Serious: Yes (Hospitalization, Disabling, Other)
  Sender: FDA-Public Use
  Company Number: JP-JNJFOC-20130413484

PATIENT
  Age: 57 Year
  Sex: Female

DRUGS (11)
  1. GOLIMUMAB [Suspect]
     Indication: RHEUMATOID ARTHRITIS
     Route: 058
     Dates: start: 20111006, end: 20120119
  2. MEDROL [Suspect]
     Indication: RHEUMATOID ARTHRITIS
     Route: 048
     Dates: start: 20120329, end: 20120617
  3. MEDROL [Suspect]
     Indication: RHEUMATOID ARTHRITIS
     Route: 048
     Dates: start: 20111125, end: 20120328
  4. MEDROL [Suspect]
     Indication: RHEUMATOID ARTHRITIS
     Route: 048
     Dates: start: 20110208, end: 20111124
  5. METOLATE [Concomitant]
     Indication: RHEUMATOID ARTHRITIS
     Dosage: 6 MG OR 8 MG
     Route: 048
     Dates: start: 20111125, end: 20120512
  6. METOLATE [Concomitant]
     Indication: RHEUMATOID ARTHRITIS
     Dosage: 6 MG OR 8 MG
     Route: 048
     Dates: start: 20110908, end: 20111124
  7. PREDONINE [Concomitant]
     Indication: RHEUMATOID ARTHRITIS
     Route: 048
     Dates: start: 20120618
  8. MYSLEE [Concomitant]
     Indication: INSOMNIA
     Route: 048
     Dates: start: 20070718
  9. FOLIAMIN [Concomitant]
     Indication: PROPHYLAXIS
     Route: 048
     Dates: start: 20110910, end: 20120512
  10. OSTELUC [Concomitant]
     Indication: RHEUMATOID ARTHRITIS
     Route: 048
     Dates: start: 20110818, end: 20120119
  11. REBAMIPIDE [Concomitant]
     Indication: GASTRITIS
     Route: 048
     Dates: start: 20110818, end: 20120119

REACTIONS (2)
  - Fall [Recovered/Resolved]
  - Lower limb fracture [Recovered/Resolved]
